FAERS Safety Report 5360545-7 (Version None)
Quarter: 2007Q2

REPORT INFORMATION
  Report Type: 
  Country: None (occurrence: None)
  Receive Date: 20070612
  Receipt Date: 20070604
  Transmission Date: 20071010
  Serious: Yes (Hospitalization)
  Sender: FDA-Public Use
  Company Number: 234019K07USA

PATIENT
  Age: 50 Year
  Sex: Male
  Weight: 117.9352 kg

DRUGS (8)
  1. REBIF [Suspect]
     Indication: MULTIPLE SCLEROSIS
     Dates: end: 20070101
  2. LIPITOR [Concomitant]
  3. DIAZEPAM [Concomitant]
  4. QUINAPRIL HCL [Concomitant]
  5. PROZAC [Concomitant]
  6. ASPIRIN [Concomitant]
  7. VITAMIN D [Concomitant]
  8. FISH OIL (FISH OIL) [Concomitant]

REACTIONS (3)
  - FOOT FRACTURE [None]
  - INJECTION SITE INFECTION [None]
  - OPEN FRACTURE [None]
